FAERS Safety Report 12313221 (Version 1)
Quarter: 2016Q2

REPORT INFORMATION
  Report Type: Spontaneous
  Country: US (occurrence: US)
  Receive Date: 20160428
  Receipt Date: 20160428
  Transmission Date: 20160815
  Serious: No
  Sender: FDA-Public Use
  Company Number: US-NOVEN PHARMACEUTICALS, INC.-US2016000253

PATIENT

DRUGS (3)
  1. BRISDELLE [Suspect]
     Active Substance: PAROXETINE MESYLATE
     Indication: NIGHT SWEATS
  2. PROLIA [Concomitant]
     Active Substance: DENOSUMAB
     Indication: OSTEOPOROSIS
  3. BRISDELLE [Suspect]
     Active Substance: PAROXETINE MESYLATE
     Indication: HOT FLUSH
     Dosage: 7.5 MG, BEDTIME
     Route: 048
     Dates: start: 20160206, end: 20160224

REACTIONS (8)
  - Insomnia [Recovering/Resolving]
  - Drug ineffective [Unknown]
  - Hunger [Recovering/Resolving]
  - Nausea [Recovering/Resolving]
  - Agitation [Recovering/Resolving]
  - Therapy cessation [Not Recovered/Not Resolved]
  - Headache [Recovered/Resolved]
  - Food craving [Recovering/Resolving]

NARRATIVE: CASE EVENT DATE: 201602
